FAERS Safety Report 9786646 (Version 1)
Quarter: 2013Q4

REPORT INFORMATION
  Report Type: Report from Study
  Country: TH (occurrence: TH)
  Receive Date: 20131227
  Receipt Date: 20131227
  Transmission Date: 20140711
  Serious: Yes (Hospitalization)
  Sender: FDA-Public Use
  Company Number: TH-MYLANLABS-2013S1028440

PATIENT
  Age: 52 Year
  Sex: Female

DRUGS (2)
  1. WARFARIN [Suspect]
     Indication: ANTICOAGULANT THERAPY
     Route: 065
  2. ASPIRIN [Concomitant]
     Indication: ANTICOAGULANT THERAPY
     Route: 065

REACTIONS (3)
  - Cerebral haemorrhage [Unknown]
  - Intraventricular haemorrhage [Unknown]
  - Acute myocardial infarction [Unknown]
